FAERS Safety Report 8073861-5 (Version None)
Quarter: 2012Q1

REPORT INFORMATION
  Report Type: 
  Country: None (occurrence: None)
  Receive Date: 20120126
  Receipt Date: 20120124
  Transmission Date: 20120608
  Serious: Yes (Death, Hospitalization)
  Sender: FDA-Public Use
  Company Number: US-BAYER-2011-106963

PATIENT
  Age: 57 Year
  Sex: Female

DRUGS (1)
  1. NEXAVAR [Suspect]
     Indication: THYROID CANCER
     Dosage: 400 MG, BID
     Route: 048

REACTIONS (2)
  - DEATH [None]
  - HYPERTENSION [None]
